FAERS Safety Report 9392588 (Version 2)
Quarter: 2014Q1

REPORT INFORMATION
  Report Type: Report from Study
  Country: AU (occurrence: AU)
  Receive Date: 20130710
  Receipt Date: 20140127
  Transmission Date: 20141002
  Serious: Yes (Other)
  Sender: FDA-Public Use
  Company Number: AU-CELGENEUS-008-C5013-13064317

PATIENT
  Age: 73 Year
  Sex: Male

DRUGS (8)
  1. CC-5013 [Suspect]
     Indication: CHRONIC LYMPHOCYTIC LEUKAEMIA
     Dosage: 2.5 MILLIGRAM
     Route: 048
     Dates: start: 20120423
  2. CC-5013 [Suspect]
     Dosage: 7.5 MILLIGRAM
     Route: 048
     Dates: start: 20130424
  3. METFORMIN [Concomitant]
     Indication: TYPE 2 DIABETES MELLITUS
     Dosage: 2 GRAM
     Route: 048
     Dates: start: 2008
  4. DIAMICRON [Concomitant]
     Indication: TYPE 2 DIABETES MELLITUS
     Dosage: 600 MILLIGRAM
     Route: 048
     Dates: start: 2008
  5. LANTUS [Concomitant]
     Indication: TYPE 2 DIABETES MELLITUS
     Dosage: UNITS
     Route: 058
     Dates: start: 20120316
  6. FLOMAXTRA [Concomitant]
     Indication: BENIGN PROSTATIC HYPERPLASIA
     Dosage: 400 MICROGRAM
     Route: 048
     Dates: start: 2008
  7. ALLOPURINOL [Concomitant]
     Indication: PROPHYLAXIS
     Dosage: 100 MILLIGRAM
     Route: 048
     Dates: start: 20130420
  8. LIPIDIL [Concomitant]
     Indication: BLOOD CHOLESTEROL INCREASED
     Dosage: 48 MILLIGRAM
     Route: 048
     Dates: start: 2008

REACTIONS (1)
  - Squamous cell carcinoma of skin [Recovered/Resolved]
